FAERS Safety Report 4544604-4 (Version None)
Quarter: 2004Q4

REPORT INFORMATION
  Report Type: 
  Country: None (occurrence: None)
  Receive Date: 20041230
  Receipt Date: 20041221
  Transmission Date: 20050328
  Serious: Yes (Hospitalization)
  Sender: FDA-Public Use
  Company Number: 8008402

PATIENT
  Age: 59 Year
  Sex: Female

DRUGS (5)
  1. KEPPRA [Suspect]
     Indication: EPILEPSY
     Dosage: 1500 MG 2/D PO
     Route: 048
     Dates: end: 20041101
  2. KEPPRA [Suspect]
     Indication: EPILEPSY
     Dosage: PO
     Route: 048
     Dates: start: 20041101
  3. SAROTEX [Concomitant]
  4. CIPRALEX [Concomitant]
  5. TRIMONIL [Concomitant]

REACTIONS (4)
  - DRUG LEVEL INCREASED [None]
  - EPILEPSY [None]
  - PARADOXICAL DRUG REACTION [None]
  - SUICIDAL IDEATION [None]
